FAERS Safety Report 18502078 (Version 3)
Quarter: 2022Q2

REPORT INFORMATION
  Report Type: Report from Study
  Country: US (occurrence: US)
  Receive Date: 20201113
  Receipt Date: 20220624
  Transmission Date: 20220721
  Serious: Yes (Other)
  Sender: FDA-Public Use
  Company Number: US-TAKEDA-US202001368

PATIENT
  Sex: Male

DRUGS (1)
  1. HUMAN IMMUNOGLOBULIN G [Suspect]
     Active Substance: HUMAN IMMUNOGLOBULIN G
     Indication: Primary immunodeficiency syndrome
     Route: 065

REACTIONS (7)
  - Cataract [Unknown]
  - Pneumothorax [Unknown]
  - COVID-19 [Unknown]
  - Fall [Unknown]
  - Head injury [Unknown]
  - Neck pain [Unknown]
  - Weight decreased [Unknown]
